FAERS Safety Report 8545273-9 (Version None)
Quarter: 2012Q3

REPORT INFORMATION
  Report Type: 
  Country: None (occurrence: None)
  Receive Date: 20120727
  Receipt Date: 20120604
  Transmission Date: 20120928
  Serious: No
  Sender: FDA-Public Use
  Company Number: US-009507513-2012SP024101

PATIENT

DRUGS (6)
  1. CLARITIN [Suspect]
     Indication: MEDICAL OBSERVATION
  2. TRI-LEGEST FE [Concomitant]
     Indication: CONTRACEPTION
     Dosage: UNK UNK, UNKNOWN
  3. CLARITIN [Suspect]
     Indication: SEASONAL ALLERGY
  4. VITAMINS (UNSPECIFIED) [Concomitant]
     Indication: PRODUCT USED FOR UNKNOWN INDICATION
     Dosage: UNK UNK, UNKNOWN
  5. OMEGA-3 MARINE TRIGLYCERIDES [Concomitant]
     Indication: PRODUCT USED FOR UNKNOWN INDICATION
     Dosage: UNK UNK, UNKNOWN
  6. CLARITIN [Suspect]
     Indication: HYPERSENSITIVITY
     Dosage: 10 MG, QAM
     Route: 048

REACTIONS (1)
  - DIZZINESS [None]
